FAERS Safety Report 5764609-5 (Version None)
Quarter: 2008Q2

REPORT INFORMATION
  Report Type: 
  Country: None (occurrence: None)
  Receive Date: 20080611
  Receipt Date: 20080422
  Transmission Date: 20081010
  Serious: No
  Sender: FDA-Public Use
  Company Number: US-BAYER-200821701NA

PATIENT
  Age: 82 Year
  Sex: Male

DRUGS (2)
  1. ULTRAVIST 300 [Suspect]
     Indication: COMPUTERISED TOMOGRAM HEAD
     Dosage: TOTAL DAILY DOSE: 100 ML  UNIT DOSE: 100 ML
     Route: 042
     Dates: start: 20080422, end: 20080422
  2. ENALAPRIL MALEATE [Concomitant]

REACTIONS (2)
  - PRURITUS [None]
  - SNEEZING [None]
